FAERS Safety Report 4958964-3 (Version None)
Quarter: 2006Q1

REPORT INFORMATION
  Report Type: 
  Country: None (occurrence: None)
  Receive Date: 20060327
  Receipt Date: 20060315
  Transmission Date: 20060701
  Serious: Yes (Life-Threatening, Hospitalization, Other)
  Sender: FDA-Public Use
  Company Number: 6021377

PATIENT
  Age: 83 Year
  Sex: Female

DRUGS (6)
  1. LEVOTHYROXINE SODIUM [Suspect]
     Dosage: 1 D ORAL
     Route: 048
     Dates: start: 20060201
  2. CORDARONE [Suspect]
     Dosage: 1 DOSAGE ORAL
     Route: 048
     Dates: start: 20060201
  3. PREVISCAN (FLUINDIONE) [Suspect]
     Dosage: 1 DOSAGE FORMS (1 DOSAGE FORMS, 1 IN 1 D) ORAL
     Route: 048
     Dates: end: 20060205
  4. LASIX [Concomitant]
  5. ALDACTONE [Concomitant]
  6. POTASSIUM CHLORIDE [Concomitant]

REACTIONS (18)
  - ATRIAL FIBRILLATION [None]
  - CARDIOGENIC SHOCK [None]
  - CHRONIC MYELOID LEUKAEMIA [None]
  - DRUG INTERACTION [None]
  - HEPATIC ENZYME INCREASED [None]
  - HYPERTHYROIDISM [None]
  - HYPOKALAEMIA [None]
  - ISCHAEMIC HEPATITIS [None]
  - LEUKOCYTOSIS [None]
  - LIVER DISORDER [None]
  - PROTHROMBIN LEVEL DECREASED [None]
  - RENAL DISORDER [None]
  - RENAL FAILURE [None]
  - RENAL IMPAIRMENT [None]
  - RESPIRATORY DISTRESS [None]
  - RIGHT VENTRICULAR FAILURE [None]
  - SHOCK [None]
  - TREATMENT NONCOMPLIANCE [None]
